FAERS Safety Report 7715753-4 (Version None)
Quarter: 2011Q3

REPORT INFORMATION
  Report Type: 
  Country: None (occurrence: None)
  Receive Date: 20110829
  Receipt Date: 20110822
  Transmission Date: 20111222
  Serious: Yes (Death, Other)
  Sender: FDA-Public Use
  Company Number: US-ROCHE-798893

PATIENT
  Sex: Male

DRUGS (20)
  1. TARCEVA [Suspect]
     Route: 065
  2. NAPROXEN [Suspect]
     Dosage: 220 MG AT BED TIME
     Route: 065
  3. PRILOSEC [Concomitant]
  4. OMEPRAZOLE [Concomitant]
  5. PAREGORIC USP 29 [Concomitant]
     Dosage: REPORTED AS PAREGORIC
  6. REVLIMID [Suspect]
     Indication: MYELODYSPLASTIC SYNDROME
     Dosage: DAILY DOSE: 5 MG (X28)
     Route: 048
     Dates: start: 20090313
  7. LORTAB [Concomitant]
  8. ACETYLSALICYLIC ACID [Concomitant]
  9. DEXAMETHASONE [Concomitant]
  10. POTASSIUM CHLORIDE [Concomitant]
  11. LORAZEPAM [Concomitant]
     Dosage: AT BED TIME AS NEEDED.
  12. SPIRIVA [Concomitant]
  13. NEUPOGEN [Suspect]
     Dosage: 480 UG AT BEDTIME
     Route: 058
  14. ATIVAN [Concomitant]
  15. MUSCLE RELAXANT [Concomitant]
     Dosage: AS NEEDED
  16. TERAZOSIN HCL [Concomitant]
     Dosage: AT BED TIME
  17. ZOFRAN [Concomitant]
     Indication: NAUSEA
  18. LASIX [Concomitant]
  19. PROSCAR [Concomitant]
  20. MULTIVITAMIN NOS [Concomitant]

REACTIONS (2)
  - LUNG ADENOCARCINOMA [None]
  - DEATH [None]
